FAERS Safety Report 16232227 (Version 1)
Quarter: 2019Q2

REPORT INFORMATION
  Report Type: Spontaneous
  Country: US (occurrence: US)
  Receive Date: 20190319
  Receipt Date: 20190319
  Transmission Date: 20190711
  Serious: No
  Sender: FDA-Public Use
  Company Number: None

PATIENT
  Age: 58 Year
  Sex: Female
  Weight: 133.2 kg

DRUGS (25)
  1. DEPAKOTE [Suspect]
     Active Substance: DIVALPROEX SODIUM
  2. NEURONTIN [Suspect]
     Active Substance: GABAPENTIN
  3. ESCITOPRAM [Concomitant]
  4. GINKO BILOBA [Concomitant]
     Active Substance: GINKGO
  5. ALEVE [Concomitant]
     Active Substance: NAPROXEN SODIUM
  6. RESTLESS LEG PILLS [Concomitant]
  7. LEVOTHYROXINE. [Concomitant]
     Active Substance: LEVOTHYROXINE
  8. WOMENS OVER 50 MULTI [Concomitant]
  9. ECHINACEA [Concomitant]
     Active Substance: ECHINACEA, UNSPECIFIED
  10. MELATONIN [Concomitant]
     Active Substance: MELATONIN
  11. FAMODATINE [Concomitant]
  12. ZEQUILL [Concomitant]
  13. TOPAMAX [Suspect]
     Active Substance: TOPIRAMATE
  14. QUETIAPINE. [Suspect]
     Active Substance: QUETIAPINE
     Indication: BIPOLAR I DISORDER
     Dosage: ?          QUANTITY:1 DF DOSAGE FORM;?
     Route: 048
     Dates: start: 20000101
  15. SUPER B COMPLEX [Concomitant]
     Active Substance: CYANOCOBALAMIN\DEXPANTHENOL\NIACINAMIDE\PYRIDOXINE HYDROCHLORIDE\RIBOFLAVIN 5^-PHOSPHATE SODIUM\THIAMINE HYDROCHLORIDE\VITAMIN B COMPLEX
  16. IRON [Concomitant]
     Active Substance: IRON
  17. MAGNESIUM [Concomitant]
     Active Substance: MAGNESIUM
  18. BLACK COHOSH [Concomitant]
     Active Substance: BLACK COHOSH
  19. OMEPRAZOLE. [Concomitant]
     Active Substance: OMEPRAZOLE
  20. FISH OIL [Concomitant]
     Active Substance: FISH OIL
  21. CRANBERRY FRUIT [Concomitant]
  22. POTASSIUM [Concomitant]
     Active Substance: POTASSIUM
  23. CLOZAPINE. [Suspect]
     Active Substance: CLOZAPINE
  24. XANAX [Suspect]
     Active Substance: ALPRAZOLAM
  25. OXYCODONE [Concomitant]
     Active Substance: OXYCODONE

REACTIONS (9)
  - Cold-stimulus headache [None]
  - Loss of employment [None]
  - Tardive dyskinesia [None]
  - Amnesia [None]
  - Dry mouth [None]
  - Weight increased [None]
  - Disturbance in attention [None]
  - Abnormal dreams [None]
  - Dysarthria [None]

NARRATIVE: CASE EVENT DATE: 20190319
